FAERS Safety Report 5656051-2 (Version None)
Quarter: 2008Q1

REPORT INFORMATION
  Report Type: 
  Country: None (occurrence: None)
  Receive Date: 20080307
  Receipt Date: 20080228
  Transmission Date: 20080703
  Serious: Yes (Death, Other)
  Sender: FDA-Public Use
  Company Number: JP-PFIZER INC-2008019327

PATIENT
  Age: 75 Year
  Sex: Male

DRUGS (2)
  1. VFEND [Suspect]
     Dosage: DAILY DOSE:600MG
     Route: 048
     Dates: start: 20080226, end: 20080226
  2. VFEND [Suspect]
     Dosage: DAILY DOSE:400MG
     Route: 048
     Dates: start: 20080227, end: 20080228

REACTIONS (2)
  - HALLUCINATION [None]
  - RESPIRATORY FAILURE [None]
